FAERS Safety Report 8990219 (Version 1)
Quarter: 2012Q4

REPORT INFORMATION
  Report Type: Report from Study
  Country: US (occurrence: US)
  Receive Date: 20121228
  Receipt Date: 20121228
  Transmission Date: 20130627
  Serious: Yes (Other)
  Sender: FDA-Public Use
  Company Number: US-ABBOTT-12P-163-0954434-00

PATIENT
  Age: 62 Year
  Sex: Female
  Weight: 49.49 kg

DRUGS (9)
  1. HUMIRA 40 MG/0.8 ML PEN [Suspect]
     Indication: CROHN^S DISEASE
     Dates: start: 200912, end: 201204
  2. HUMIRA 40 MG/0.8 ML PEN [Suspect]
     Dates: start: 20120623
  3. PREDNISONE [Suspect]
     Indication: PRODUCT USED FOR UNKNOWN INDICATION
     Dosage: Daily dose 40 mg
  4. PREDNISONE [Suspect]
  5. TIMOLOL [Concomitant]
     Indication: GLAUCOMA
     Dosage: 1 drop each eye QD in the morning
     Route: 047
  6. XANAX [Concomitant]
     Indication: ANXIETY
  7. CALCIUM WITH D [Concomitant]
     Indication: OSTEOPOROSIS
  8. BONIVA [Concomitant]
     Indication: BONE DISORDER
  9. IMURAN [Concomitant]
     Indication: CROHN^S DISEASE

REACTIONS (9)
  - Foot fracture [Not Recovered/Not Resolved]
  - Crohn^s disease [Not Recovered/Not Resolved]
  - Gastrointestinal infection [Not Recovered/Not Resolved]
  - Colitis [Not Recovered/Not Resolved]
  - Abdominal pain [Not Recovered/Not Resolved]
  - Gastrointestinal perforation [Unknown]
  - Scar [Unknown]
  - Injection site pain [Unknown]
  - Weight decreased [Unknown]
